FAERS Safety Report 24437506 (Version 1)
Quarter: 2024Q4

REPORT INFORMATION
  Report Type: Spontaneous
  Country: US (occurrence: None)
  Receive Date: 20241011
  Receipt Date: 20241011
  Transmission Date: 20250115
  Serious: Yes (Hospitalization)
  Sender: Public
  Company Number: None

PATIENT
  Sex: Female

DRUGS (4)
  1. PANZYGA [Suspect]
     Active Substance: HUMAN IMMUNOGLOBULIN G
     Indication: Myasthenia gravis
     Dosage: OTHER QUANTITY : 30GM(300ML);?OTHER FREQUENCY : DAY 1 25GM (250ML) ON DAY 2 EVERY 14 DAYS;?
     Route: 042
     Dates: start: 202210
  2. PANZYGA [Suspect]
     Active Substance: HUMAN IMMUNOGLOBULIN G
     Indication: Myasthenia gravis
     Dosage: OTHER QUANTITY : 30GM (300ML) ;?OTHER FREQUENCY : DAY 1 25GM (250ML) ON DAY 2 EVERY 14 DAYS;?
     Route: 042
     Dates: start: 202210
  3. DEXTROSE [Concomitant]
  4. HEPARIN [Concomitant]

REACTIONS (2)
  - Myasthenia gravis [None]
  - Dyspnoea [None]
